FAERS Safety Report 13734976 (Version 2)
Quarter: 2017Q3

REPORT INFORMATION
  Report Type: Report from Study
  Country: AT (occurrence: AT)
  Receive Date: 20170710
  Receipt Date: 20170719
  Transmission Date: 20171127
  Serious: Yes (Hospitalization)
  Sender: FDA-Public Use
  Company Number: AT-ROCHE-1954379

PATIENT
  Age: 63 Year
  Sex: Male
  Weight: 72 kg

DRUGS (6)
  1. RAMIPRIL. [Concomitant]
     Active Substance: RAMIPRIL
     Indication: HYPERTENSION
     Dosage: 5/25 MG
     Route: 048
     Dates: start: 20170523
  2. THROMBO ASS [Concomitant]
     Active Substance: ASPIRIN
     Indication: HYPERTENSION
     Route: 048
     Dates: start: 20170523
  3. PANTOPRAZOL [Concomitant]
     Active Substance: PANTOPRAZOLE SODIUM
     Route: 048
     Dates: start: 20170523
  4. IRENAT [Concomitant]
     Active Substance: SODIUM PERCHLORATE MONOHYDRATE
     Indication: HYPERTHYROIDISM
     Route: 048
     Dates: start: 20170523
  5. TAMSULOSIN [Concomitant]
     Active Substance: TAMSULOSIN
     Indication: BENIGN PROSTATIC HYPERPLASIA
     Route: 048
     Dates: start: 20170523
  6. ATEZOLIZUMAB. [Suspect]
     Active Substance: ATEZOLIZUMAB
     Indication: TRANSITIONAL CELL CARCINOMA
     Route: 042
     Dates: start: 20170510, end: 20170531

REACTIONS (2)
  - Pericardial effusion [Unknown]
  - Pneumonitis [Unknown]

NARRATIVE: CASE EVENT DATE: 20170621
